FAERS Safety Report 6596321-7 (Version None)
Quarter: 2010Q1

REPORT INFORMATION
  Report Type: 
  Country: None (occurrence: None)
  Receive Date: 20100223
  Receipt Date: 20100212
  Transmission Date: 20100710
  Serious: Yes (Other)
  Sender: FDA-Public Use
  Company Number: PHEH2009US11352

PATIENT
  Sex: Female
  Weight: 71 kg

DRUGS (3)
  1. EXJADE [Suspect]
     Indication: HAEMOCHROMATOSIS
     Dosage: 600 MG DAILY
     Route: 048
     Dates: start: 20090501, end: 20090811
  2. EXJADE [Suspect]
     Indication: IRON OVERLOAD
  3. MULTI-VITAMINS [Concomitant]

REACTIONS (5)
  - FATIGUE [None]
  - FEELING ABNORMAL [None]
  - GASTROINTESTINAL DISORDER [None]
  - HAEMOLYTIC ANAEMIA [None]
  - NAUSEA [None]
